FAERS Safety Report 4275407-6 (Version None)
Quarter: 2004Q1

REPORT INFORMATION
  Report Type: 
  Country: None (occurrence: None)
  Receive Date: 20040116
  Receipt Date: 20040106
  Transmission Date: 20041129
  Serious: Yes (Hospitalization, Other)
  Sender: FDA-Public Use
  Company Number: 2003031076

PATIENT
  Age: 72 Year
  Sex: Male
  Weight: 90.7194 kg

DRUGS (7)
  1. VIAGRA [Suspect]
     Indication: ERECTILE DYSFUNCTION
     Dosage: 50 MG, ORAL
     Route: 048
     Dates: start: 19980401
  2. ATENOLOL [Concomitant]
  3. SIMVASTATIN [Concomitant]
  4. IRBESARTAN [Concomitant]
  5. ACETYLSALICYLIC ACID SRT [Concomitant]
  6. NICOTINIC ACID [Concomitant]
  7. KARVEA HCT (HYDROCHLORTHIAZIDE, IRBESARTAN) [Concomitant]

REACTIONS (1)
  - DRUG EFFECT DECREASED [None]
